FAERS Safety Report 12989347 (Version 1)
Quarter: 2016Q4

REPORT INFORMATION
  Report Type: Spontaneous
  Country: HR (occurrence: HR)
  Receive Date: 20161201
  Receipt Date: 20161201
  Transmission Date: 20170207
  Serious: Yes (Life-Threatening, Hospitalization)
  Sender: FDA-Public Use
  Company Number: HR-ROCHE-1862091

PATIENT
  Sex: Female
  Weight: 59 kg

DRUGS (1)
  1. RIVOTRIL [Suspect]
     Active Substance: CLONAZEPAM
     Indication: BIPOLAR DISORDER
     Dosage: 1MG; 1,1,1
     Route: 048
     Dates: start: 20160201, end: 20160206

REACTIONS (8)
  - Disorientation [Recovered/Resolved]
  - Amnesia [Recovered/Resolved]
  - Suicidal ideation [Unknown]
  - Depression [Unknown]
  - Hallucination, visual [Recovered/Resolved]
  - Productive cough [Recovered/Resolved]
  - Bronchospasm [Recovered/Resolved with Sequelae]
  - Drug withdrawal syndrome [Recovered/Resolved with Sequelae]

NARRATIVE: CASE EVENT DATE: 201602
